FAERS Safety Report 23194772 (Version 3)
Quarter: 2023Q4

REPORT INFORMATION
  Report Type: Spontaneous
  Country: RU (occurrence: RU)
  Receive Date: 20231117
  Receipt Date: 20231128
  Transmission Date: 20240109
  Serious: Yes (Death)
  Sender: FDA-Public Use
  Company Number: RU-002147023-NVSC2023RU244576

PATIENT
  Sex: Male

DRUGS (1)
  1. ZOLGENSMA [Suspect]
     Active Substance: ONASEMNOGENE ABEPARVOVEC-XIOI
     Indication: Spinal muscular atrophy
     Dosage: 35.8 ML, ONCE/SINGLE (5 BOTTLES)
     Route: 042
     Dates: start: 20230921, end: 20230921

REACTIONS (2)
  - Acute respiratory failure [Fatal]
  - Stomatitis [Unknown]

NARRATIVE: CASE EVENT DATE: 20231113
